FAERS Safety Report 21595285 (Version 4)
Quarter: 2023Q4

REPORT INFORMATION
  Report Type: Report from Study
  Country: NL (occurrence: NL)
  Receive Date: 20221115
  Receipt Date: 20231227
  Transmission Date: 20240110
  Serious: Yes (Death)
  Sender: FDA-Public Use
  Company Number: NL-MYLANLABS-2022M1118613

PATIENT
  Age: 61 Year
  Sex: Female

DRUGS (1)
  1. CREON [Suspect]
     Active Substance: PANCRELIPASE AMYLASE\PANCRELIPASE LIPASE\PANCRELIPASE PROTEASE
     Indication: Product used for unknown indication
     Dosage: UNK (STRENGTH 25.000)
     Route: 048
     Dates: start: 20210820

REACTIONS (1)
  - Death [Fatal]

NARRATIVE: CASE EVENT DATE: 20221025
